FAERS Safety Report 21777996 (Version 1)
Quarter: 2022Q4

REPORT INFORMATION
  Report Type: Spontaneous
  Country: IT (occurrence: IT)
  Receive Date: 20221226
  Receipt Date: 20221226
  Transmission Date: 20230112
  Serious: Yes (Other)
  Sender: FDA-Public Use
  Company Number: None

PATIENT
  Age: 45 Year
  Sex: Female

DRUGS (3)
  1. OMALIZUMAB [Suspect]
     Active Substance: OMALIZUMAB
     Indication: Urticaria chronic
     Dosage: 300 MG (2X150 MG)
     Route: 058
     Dates: start: 20220726, end: 20221026
  2. MONTELUKAST [Concomitant]
     Active Substance: MONTELUKAST SODIUM
     Indication: Urticaria chronic
     Dosage: UNK
  3. FOSTER [Concomitant]
     Active Substance: BECLOMETHASONE\FORMOTEROL

REACTIONS (18)
  - Angioedema [Recovered/Resolved]
  - Oedema mouth [Unknown]
  - Circumoral swelling [Unknown]
  - Tongue oedema [Unknown]
  - Swollen tongue [Unknown]
  - Oropharyngeal oedema [Unknown]
  - Oropharyngeal swelling [Unknown]
  - Oropharyngeal spasm [Unknown]
  - Tongue spasm [Unknown]
  - Dyspnoea [Recovered/Resolved]
  - Eye oedema [Unknown]
  - Eyelid oedema [Unknown]
  - Eye swelling [Unknown]
  - Swelling of eyelid [Unknown]
  - Skin oedema [Unknown]
  - Skin swelling [Unknown]
  - Urticaria [Recovered/Resolved]
  - Rash [Unknown]

NARRATIVE: CASE EVENT DATE: 20220726
